FAERS Safety Report 5517452-6 (Version None)
Quarter: 2007Q4

REPORT INFORMATION
  Report Type: 
  Country: None (occurrence: None)
  Receive Date: 20071114
  Receipt Date: 20071106
  Transmission Date: 20080405
  Serious: Yes (Hospitalization)
  Sender: FDA-Public Use
  Company Number: AR-ABBOTT-07P-007-0423692-00

PATIENT
  Sex: Female

DRUGS (3)
  1. HUMIRA [Suspect]
     Indication: RHEUMATOID ARTHRITIS
     Route: 058
     Dates: start: 20070909, end: 20070923
  2. HUMIRA [Suspect]
     Route: 058
     Dates: start: 20071023
  3. ISONIAZID [Concomitant]
     Indication: TUBERCULOSIS SKIN TEST POSITIVE
     Route: 048
     Dates: start: 20070701

REACTIONS (3)
  - CONVULSION [None]
  - GRANULOMA [None]
  - VASCULITIS CEREBRAL [None]
